FAERS Safety Report 17674525 (Version 4)
Quarter: 2021Q2

REPORT INFORMATION
  Report Type: Spontaneous
  Country: US (occurrence: US)
  Receive Date: 20200416
  Receipt Date: 20210525
  Transmission Date: 20210716
  Serious: Yes (Death, Hospitalization, Other)
  Sender: FDA-Public Use
  Company Number: US-ASTRAZENECA-2020SE50542

PATIENT
  Age: 787 Month
  Sex: Female
  Weight: 133.8 kg

DRUGS (98)
  1. PROTONIX [Suspect]
     Active Substance: PANTOPRAZOLE SODIUM
     Indication: GASTROOESOPHAGEAL REFLUX DISEASE
     Dosage: GENERIC UNKNOWN
     Route: 048
     Dates: start: 20141217
  2. AMOXICILLIN. [Concomitant]
     Active Substance: AMOXICILLIN
  3. VIGAMOX [Concomitant]
     Active Substance: MOXIFLOXACIN HYDROCHLORIDE
     Indication: EYE INFECTION
  4. CARVEDILOL. [Concomitant]
     Active Substance: CARVEDILOL
     Indication: CARDIAC DISORDER
  5. CARVEDILOL. [Concomitant]
     Active Substance: CARVEDILOL
     Indication: BLOOD PRESSURE ABNORMAL
  6. HYDRALAZINE [Concomitant]
     Active Substance: HYDRALAZINE HYDROCHLORIDE
  7. NAPROXEN. [Concomitant]
     Active Substance: NAPROXEN
  8. GABAPENTIN. [Concomitant]
     Active Substance: GABAPENTIN
  9. FLUCONAZOLE. [Concomitant]
     Active Substance: FLUCONAZOLE
  10. LEVEMIR [Concomitant]
     Active Substance: INSULIN DETEMIR
  11. TRAMADOL. [Concomitant]
     Active Substance: TRAMADOL
  12. NUBAIN [Concomitant]
     Active Substance: NALBUPHINE HYDROCHLORIDE
  13. FAMOTIDINE. [Concomitant]
     Active Substance: FAMOTIDINE
  14. BACTROBAN [Concomitant]
     Active Substance: MUPIROCIN\MUPIROCIN CALCIUM
  15. DOXYCYCLINE. [Concomitant]
     Active Substance: DOXYCYCLINE
  16. ADVAIR HFA [Concomitant]
     Active Substance: FLUTICASONE PROPIONATE\SALMETEROL XINAFOATE
  17. NOVOLOG [Concomitant]
     Active Substance: INSULIN ASPART
  18. XANAX [Concomitant]
     Active Substance: ALPRAZOLAM
  19. TAMIFLU [Concomitant]
     Active Substance: OSELTAMIVIR PHOSPHATE
  20. ALBUTEROL. [Concomitant]
     Active Substance: ALBUTEROL
  21. NITROGLYCERIN. [Concomitant]
     Active Substance: NITROGLYCERIN
  22. VANCOMYCIN [Concomitant]
     Active Substance: VANCOMYCIN
  23. MYLANTA [Concomitant]
     Active Substance: ALUMINUM HYDROXIDE\DIMETHICONE\MAGNESIUM HYDROXIDE
  24. MILK OF MAGNESIA [Concomitant]
     Active Substance: MAGNESIUM HYDROXIDE
  25. NEXIUM [Suspect]
     Active Substance: ESOMEPRAZOLE MAGNESIUM
     Indication: GASTROOESOPHAGEAL REFLUX DISEASE
     Route: 048
     Dates: start: 200001, end: 201601
  26. NEXIUM [Suspect]
     Active Substance: ESOMEPRAZOLE MAGNESIUM
     Indication: GASTROOESOPHAGEAL REFLUX DISEASE
     Dosage: 40.0MG UNKNOWN
     Route: 048
     Dates: start: 20121213
  27. NEXIUM [Suspect]
     Active Substance: ESOMEPRAZOLE MAGNESIUM
     Indication: GASTROOESOPHAGEAL REFLUX DISEASE
     Dosage: 40.0MG UNKNOWN
     Route: 048
     Dates: start: 2001, end: 2016
  28. PRILOSEC [Suspect]
     Active Substance: OMEPRAZOLE MAGNESIUM
     Indication: GASTROOESOPHAGEAL REFLUX DISEASE
     Route: 048
     Dates: start: 2013
  29. POTASSIUM CHLORIDE. [Concomitant]
     Active Substance: POTASSIUM CHLORIDE
  30. ZAROXOLYN [Concomitant]
     Active Substance: METOLAZONE
  31. DIFLUCAN [Concomitant]
     Active Substance: FLUCONAZOLE
  32. TORSEMIDE. [Concomitant]
     Active Substance: TORSEMIDE
  33. DULOXETINE. [Concomitant]
     Active Substance: DULOXETINE
  34. IPRATROPIUM [Concomitant]
     Active Substance: IPRATROPIUM
  35. COLACE [Concomitant]
     Active Substance: DOCUSATE SODIUM
  36. GLUCAGEN [Concomitant]
     Active Substance: GLUCAGON HYDROCHLORIDE
  37. NEXIUM [Suspect]
     Active Substance: ESOMEPRAZOLE MAGNESIUM
     Indication: GASTROOESOPHAGEAL REFLUX DISEASE
     Dosage: 40.0MG UNKNOWN
     Route: 048
     Dates: start: 20070616
  38. NEXIUM 24HR [Suspect]
     Active Substance: ESOMEPRAZOLE MAGNESIUM
     Indication: GASTROOESOPHAGEAL REFLUX DISEASE
     Dosage: ACCORDING TO PKG
     Route: 048
     Dates: start: 2013, end: 2016
  39. PRILOSEC [Suspect]
     Active Substance: OMEPRAZOLE MAGNESIUM
     Indication: GASTROOESOPHAGEAL REFLUX DISEASE
     Dosage: GENERIC
     Route: 065
     Dates: start: 2010, end: 2012
  40. ATARAX [Concomitant]
     Active Substance: HYDROXYZINE HYDROCHLORIDE
     Indication: MULTIPLE ALLERGIES
  41. BUMEX [Concomitant]
     Active Substance: BUMETANIDE
  42. TOBREX [Concomitant]
     Active Substance: TOBRAMYCIN
  43. ASPIRIN. [Concomitant]
     Active Substance: ASPIRIN
  44. PERCOCET [Concomitant]
     Active Substance: ACETAMINOPHEN\OXYCODONE HYDROCHLORIDE
  45. NUCYNTA [Concomitant]
     Active Substance: TAPENTADOL HYDROCHLORIDE
  46. RANEXA [Concomitant]
     Active Substance: RANOLAZINE
  47. MAGNESIUM OXIDE. [Concomitant]
     Active Substance: MAGNESIUM OXIDE
  48. KETOCONAZOLE. [Concomitant]
     Active Substance: KETOCONAZOLE
  49. BROVANA [Concomitant]
     Active Substance: ARFORMOTEROL TARTRATE
  50. NEXIUM [Suspect]
     Active Substance: ESOMEPRAZOLE MAGNESIUM
     Indication: GASTROOESOPHAGEAL REFLUX DISEASE
     Route: 048
     Dates: start: 2007, end: 2013
  51. PROTONIX [Suspect]
     Active Substance: PANTOPRAZOLE SODIUM
     Indication: GASTROOESOPHAGEAL REFLUX DISEASE
     Dosage: UNKNOWN
     Route: 048
     Dates: start: 20160628
  52. PROVENTIL [Concomitant]
     Active Substance: ALBUTEROL
  53. LORTAB [Concomitant]
     Active Substance: ACETAMINOPHEN\HYDROCODONE BITARTRATE
     Indication: PAIN
  54. NYSTATIN. [Concomitant]
     Active Substance: NYSTATIN
  55. PREDNISONE. [Concomitant]
     Active Substance: PREDNISONE
  56. SINGULAIR [Concomitant]
     Active Substance: MONTELUKAST SODIUM
     Indication: ASTHMA
  57. LIDOCAINE. [Concomitant]
     Active Substance: LIDOCAINE
  58. LEVOTHYROXINE. [Concomitant]
     Active Substance: LEVOTHYROXINE
     Indication: THYROID DISORDER
  59. RAMIPRIL. [Concomitant]
     Active Substance: RAMIPRIL
  60. POLYMYXIN [Concomitant]
     Active Substance: POLYMYXIN
  61. MENTAX [Concomitant]
     Active Substance: BUTENAFINE HYDROCHLORIDE
  62. DEXTROSE. [Concomitant]
     Active Substance: DEXTROSE
  63. TESSALON [Concomitant]
     Active Substance: BENZONATATE
  64. TYLENOL [Concomitant]
     Active Substance: ACETAMINOPHEN
  65. SODIUM CHLORIDE. [Concomitant]
     Active Substance: SODIUM CHLORIDE
  66. ZINC SULFATE. [Concomitant]
     Active Substance: ZINC SULFATE
  67. TUMS [Concomitant]
     Active Substance: CALCIUM CARBONATE
     Dates: start: 1997, end: 2001
  68. MYLANTA [Concomitant]
     Active Substance: ALUMINUM HYDROXIDE\DIMETHICONE\MAGNESIUM HYDROXIDE
     Dates: start: 1999, end: 2001
  69. PRILOSEC [Suspect]
     Active Substance: OMEPRAZOLE MAGNESIUM
     Indication: GASTROOESOPHAGEAL REFLUX DISEASE
     Route: 048
     Dates: start: 200001, end: 201601
  70. PRILOSEC [Suspect]
     Active Substance: OMEPRAZOLE MAGNESIUM
     Indication: GASTROOESOPHAGEAL REFLUX DISEASE
     Dosage: GENERIC
     Route: 048
     Dates: start: 20101129
  71. ZYVOX [Concomitant]
     Active Substance: LINEZOLID
  72. SEPTRA [Concomitant]
     Active Substance: SULFAMETHOXAZOLE\TRIMETHOPRIM
  73. ENALAPRIL [Concomitant]
     Active Substance: ENALAPRIL
  74. ALLOPURINOL. [Concomitant]
     Active Substance: ALLOPURINOL
  75. OXYCODONE [Concomitant]
     Active Substance: OXYCODONE
  76. LOSARTAN. [Concomitant]
     Active Substance: LOSARTAN
  77. DUONEB [Concomitant]
     Active Substance: ALBUTEROL SULFATE\IPRATROPIUM BROMIDE
  78. MORPHINE [Concomitant]
     Active Substance: MORPHINE
  79. TIOTROPIUM [Concomitant]
     Active Substance: TIOTROPIUM
  80. NEXIUM 24HR [Suspect]
     Active Substance: ESOMEPRAZOLE MAGNESIUM
     Indication: GASTROOESOPHAGEAL REFLUX DISEASE
     Route: 048
     Dates: start: 200001, end: 201601
  81. PROTONIX [Suspect]
     Active Substance: PANTOPRAZOLE SODIUM
     Indication: GASTROOESOPHAGEAL REFLUX DISEASE
     Dosage: GENERIC40.0MG UNKNOWN
     Route: 065
     Dates: start: 20151120
  82. LOTEMAX [Concomitant]
     Active Substance: LOTEPREDNOL ETABONATE
     Indication: EYE INFECTION
  83. VITAMIN D [Concomitant]
     Active Substance: VITAMIN D NOS
  84. LOMOTIL [Concomitant]
     Active Substance: ATROPINE SULFATE\DIPHENOXYLATE HYDROCHLORIDE
  85. VICODIN [Concomitant]
     Active Substance: ACETAMINOPHEN\HYDROCODONE BITARTRATE
  86. SPIRONOLACTONE. [Concomitant]
     Active Substance: SPIRONOLACTONE
  87. VANCOMYCIN [Concomitant]
     Active Substance: VANCOMYCIN
     Indication: WOUND INFECTION STAPHYLOCOCCAL
  88. CEPHALEXIN. [Concomitant]
     Active Substance: CEPHALEXIN
  89. VICTOZA [Concomitant]
     Active Substance: LIRAGLUTIDE
  90. PRILOSEC OTC [Suspect]
     Active Substance: OMEPRAZOLE MAGNESIUM
     Indication: GASTROOESOPHAGEAL REFLUX DISEASE
     Dosage: ACCORDING TO PKG
     Route: 048
     Dates: start: 2013
  91. PREVACID [Suspect]
     Active Substance: LANSOPRAZOLE
     Indication: GASTROOESOPHAGEAL REFLUX DISEASE
     Route: 065
     Dates: start: 2013
  92. PREVACID 24 HR [Suspect]
     Active Substance: LANSOPRAZOLE
     Indication: GASTROOESOPHAGEAL REFLUX DISEASE
     Dosage: ACCORDING TO PKG
     Route: 065
     Dates: start: 2013
  93. PROTONIX [Suspect]
     Active Substance: PANTOPRAZOLE SODIUM
     Indication: GASTROOESOPHAGEAL REFLUX DISEASE
     Dosage: GENERIC
     Route: 065
     Dates: start: 2014, end: 2015
  94. FUROSEMIDE. [Concomitant]
     Active Substance: FUROSEMIDE
     Indication: OEDEMA
  95. ZOFRAN [Concomitant]
     Active Substance: ONDANSETRON HYDROCHLORIDE
  96. DOBUTAMINE [Concomitant]
     Active Substance: DOBUTAMINE HYDROCHLORIDE
  97. PEPCID [Concomitant]
     Active Substance: FAMOTIDINE
     Dates: start: 2008
  98. ZANTAC [Concomitant]
     Active Substance: RANITIDINE HYDROCHLORIDE
     Dosage: 150
     Dates: start: 2006, end: 2007

REACTIONS (7)
  - Hyperkalaemia [Unknown]
  - Acute kidney injury [Unknown]
  - Chronic kidney disease [Unknown]
  - Renal impairment [Unknown]
  - Death [Fatal]
  - Renal failure [Unknown]
  - Tubulointerstitial nephritis [Unknown]

NARRATIVE: CASE EVENT DATE: 201006
